FAERS Safety Report 10407605 (Version 2)
Quarter: 2015Q3

REPORT INFORMATION
  Report Type: Spontaneous
  Country: US (occurrence: US)
  Receive Date: 20140825
  Receipt Date: 20150826
  Transmission Date: 20151125
  Serious: No
  Sender: FDA-Public Use
  Company Number: US-BRACCO-010966

PATIENT

DRUGS (1)
  1. KINEVAC [Suspect]
     Active Substance: SINCALIDE
     Indication: HEPATOBILIARY SCAN

REACTIONS (2)
  - Expired product administered [Unknown]
  - No adverse event [Unknown]
